FAERS Safety Report 4963762-0 (Version None)
Quarter: 2006Q1

REPORT INFORMATION
  Report Type: 
  Country: None (occurrence: None)
  Receive Date: 20060330
  Receipt Date: 20060322
  Transmission Date: 20060701
  Serious: Yes (Other)
  Sender: FDA-Public Use
  Company Number: 2006-02-0765

PATIENT
  Age: 57 Year
  Sex: Male
  Weight: 53 kg

DRUGS (4)
  1. PEG-INTRON [Suspect]
     Indication: HEPATITIS C
     Dosage: 80 MCG QW SUBCUTANEOUS
     Route: 058
     Dates: start: 20050622, end: 20060220
  2. REBETOL [Suspect]
     Indication: HEPATITIS C
     Dosage: 600-400 MG ORAL
     Route: 048
     Dates: start: 20050622, end: 20060227
  3. URINORM TABLETS [Concomitant]
  4. LIVACT (ISOLEUCINE/LEUCINE/VALINE) [Concomitant]

REACTIONS (6)
  - BUNDLE BRANCH BLOCK RIGHT [None]
  - CHEST X-RAY ABNORMAL [None]
  - HILAR LYMPHADENOPATHY [None]
  - MASS [None]
  - NECK MASS [None]
  - SARCOIDOSIS [None]
